FAERS Safety Report 15558938 (Version 3)
Quarter: 2018Q4

REPORT INFORMATION
  Report Type: Spontaneous
  Country: IT (occurrence: IT)
  Receive Date: 20181029
  Receipt Date: 20181121
  Transmission Date: 20190205
  Serious: Yes (Other)
  Sender: FDA-Public Use
  Company Number: IT-TEVA-2018-IT-968888

PATIENT
  Age: 68 Year
  Sex: Female

DRUGS (11)
  1. CARDICOR [Concomitant]
     Active Substance: BISOPROLOL
     Route: 048
  2. ALLOPURINOL. [Concomitant]
     Active Substance: ALLOPURINOL
     Route: 048
  3. JANUMET [Suspect]
     Active Substance: METFORMIN HYDROCHLORIDE\SITAGLIPTIN PHOSPHATE
     Indication: TYPE 2 DIABETES MELLITUS
     Dosage: 1 DOSAGE FORMS DAILY;
     Route: 048
     Dates: start: 20180822, end: 20180823
  4. TORVAST [Concomitant]
     Active Substance: ATORVASTATIN
     Route: 048
  5. SOLDESAM [Concomitant]
     Active Substance: DEXAMETHASONE
     Route: 042
  6. ALMARYTM [Concomitant]
     Active Substance: FLECAINIDE ACETATE
     Route: 048
  7. LANTUS [Suspect]
     Active Substance: INSULIN GLARGINE
     Indication: TYPE 2 DIABETES MELLITUS
     Dosage: 10 IU (INTERNATIONAL UNIT) DAILY;
     Route: 058
     Dates: start: 20180822, end: 20180823
  8. CARDIOASPIRIN [Concomitant]
     Active Substance: ASPIRIN
     Route: 048
  9. METFORMIN HYDROCHLORIDE. [Suspect]
     Active Substance: METFORMIN HYDROCHLORIDE
     Indication: TYPE 2 DIABETES MELLITUS
     Dosage: 1 GRAM DAILY;
     Route: 048
     Dates: start: 20180822, end: 20180823
  10. KEPPRA [Concomitant]
     Active Substance: LEVETIRACETAM
     Route: 048
  11. CORIXIL [Concomitant]
     Route: 048

REACTIONS (2)
  - Anuria [Not Recovered/Not Resolved]
  - Metabolic acidosis [Not Recovered/Not Resolved]

NARRATIVE: CASE EVENT DATE: 20180823
